FAERS Safety Report 21479552 (Version 1)
Quarter: 2022Q4

REPORT INFORMATION
  Report Type: Spontaneous
  Country: HR (occurrence: HR)
  Receive Date: 20221019
  Receipt Date: 20221019
  Transmission Date: 20230113
  Serious: Yes (Other)
  Sender: FDA-Public Use
  Company Number: HR-AMGEN-HRVSP2022175282

PATIENT
  Age: 49 Year
  Sex: Female

DRUGS (3)
  1. AIMOVIG [Suspect]
     Active Substance: ERENUMAB-AOOE
     Indication: Cluster headache
     Dosage: 70 MG, QMO
     Route: 058
     Dates: start: 20220131, end: 20220329
  2. Nalgesin [Concomitant]
     Indication: Back pain
     Dosage: UNK UNK, PRN (2X1)
     Route: 048
     Dates: start: 2021
  3. NORMABEL [Concomitant]
     Active Substance: DIAZEPAM
     Indication: Anxiety disorder
     Dosage: UNK UNK, PRN (2X1)
     Route: 048
     Dates: start: 2021

REACTIONS (4)
  - Weight increased [Recovering/Resolving]
  - Haematochezia [Recovering/Resolving]
  - Dyschezia [Recovering/Resolving]
  - Faeces hard [Recovering/Resolving]

NARRATIVE: CASE EVENT DATE: 20220131
